FAERS Safety Report 7904128-0 (Version None)
Quarter: 2011Q4

REPORT INFORMATION
  Report Type: 
  Country: None (occurrence: None)
  Receive Date: 20111109
  Receipt Date: 20111031
  Transmission Date: 20120403
  Serious: Yes (Hospitalization)
  Sender: FDA-Public Use
  Company Number: US-ASTRAZENECA-2011SE04441

PATIENT
  Age: 76 Year
  Sex: Female

DRUGS (2)
  1. PRILOSEC [Suspect]
     Route: 048
  2. NEXIUM [Suspect]
     Route: 048

REACTIONS (8)
  - COLONIC POLYP [None]
  - DRUG DOSE OMISSION [None]
  - NASOPHARYNGITIS [None]
  - NASAL CONGESTION [None]
  - CONSTIPATION [None]
  - DRUG EFFECT DECREASED [None]
  - GASTROOESOPHAGEAL REFLUX DISEASE [None]
  - COLON CANCER [None]
